FAERS Safety Report 8113894-3 (Version None)
Quarter: 2012Q1

REPORT INFORMATION
  Report Type: 
  Country: None (occurrence: None)
  Receive Date: 20120203
  Receipt Date: 20120124
  Transmission Date: 20120608
  Serious: Yes (Hospitalization)
  Sender: FDA-Public Use
  Company Number: FR-ROCHE-1033469

PATIENT
  Sex: Male

DRUGS (7)
  1. PEGASYS [Suspect]
     Indication: PRODUCT USED FOR UNKNOWN INDICATION
     Dates: start: 20111212
  2. EFFEXOR [Suspect]
     Indication: PRODUCT USED FOR UNKNOWN INDICATION
     Route: 048
     Dates: start: 20100421, end: 20111226
  3. PANTOPRAZOLE [Concomitant]
     Route: 048
  4. METHADONE HCL [Concomitant]
     Route: 048
  5. LOXAPINE HCL [Concomitant]
     Route: 048
     Dates: start: 20111205
  6. COPEGUS [Suspect]
     Indication: PRODUCT USED FOR UNKNOWN INDICATION
     Dates: start: 20111212
  7. INCIVO [Suspect]
     Indication: PRODUCT USED FOR UNKNOWN INDICATION
     Route: 048
     Dates: start: 20111209

REACTIONS (1)
  - VENTRICULAR TACHYCARDIA [None]
